FAERS Safety Report 4551488-7 (Version None)
Quarter: 2005Q1

REPORT INFORMATION
  Report Type: 
  Country: None (occurrence: None)
  Receive Date: 20050110
  Receipt Date: 20050104
  Transmission Date: 20050727
  Serious: Yes (Life-Threatening)
  Sender: FDA-Public Use
  Company Number: 2005-123923-NL

PATIENT
  Age: 55 Year
  Sex: Female

DRUGS (2)
  1. MIRTAZAPINE [Suspect]
     Indication: DEPRESSION
     Dosage: ORAL
     Route: 048
     Dates: start: 20041112, end: 20041113
  2. CITALOPRAM [Concomitant]

REACTIONS (3)
  - CIRCULATORY COLLAPSE [None]
  - DIZZINESS [None]
  - SYNCOPE [None]
